FAERS Safety Report 15618701 (Version 1)
Quarter: 2018Q4

REPORT INFORMATION
  Report Type: Spontaneous
  Country: FR (occurrence: FR)
  Receive Date: 20181114
  Receipt Date: 20181114
  Transmission Date: 20190205
  Serious: Yes (Congenital Anomaly, Other)
  Sender: FDA-Public Use
  Company Number: FR-ALLERGAN-1000045328

PATIENT
  Age: 39 Year
  Sex: Female

DRUGS (7)
  1. ACAMPROSATE CALCIUM UNK [Suspect]
     Active Substance: ACAMPROSATE CALCIUM
     Indication: ALCOHOLISM
     Dosage: 333 MG, QD
     Route: 048
  2. TAHOR [Suspect]
     Active Substance: ATORVASTATIN CALCIUM
     Indication: DYSLIPIDAEMIA
     Dosage: 20 MG, QD
     Route: 048
     Dates: end: 20121115
  3. COAPROVEL [Suspect]
     Active Substance: HYDROCHLOROTHIAZIDE\IRBESARTAN
     Indication: HYPERTENSION
     Dosage: UNK, UNKNOWN
     Route: 048
     Dates: end: 20121115
  4. LYRICA [Suspect]
     Active Substance: PREGABALIN
     Indication: EPILEPSY
     Dosage: 150 MG, BID
     Route: 048
     Dates: end: 20121115
  5. LOXEN (NICARDIPINE HYDROCHLORIDE) [Suspect]
     Active Substance: NICARDIPINE HYDROCHLORIDE
     Dosage: UNK, UNKNOWN
     Route: 048
     Dates: end: 20121115
  6. REVIA [Suspect]
     Active Substance: NALTREXONE HYDROCHLORIDE
     Indication: ALCOHOLISM
     Dosage: 50 MG, QD
     Route: 048
     Dates: end: 20121115
  7. LOXEN (NICARDIPINE HYDROCHLORIDE) [Suspect]
     Active Substance: NICARDIPINE HYDROCHLORIDE
     Indication: HYPERTENSION
     Dosage: UNK, UNKNOWN
     Route: 048

REACTIONS (3)
  - Abortion induced [Recovered/Resolved with Sequelae]
  - Alcohol poisoning [Unknown]
  - Maternal exposure timing unspecified [Recovered/Resolved]

NARRATIVE: CASE EVENT DATE: 20121015
